FAERS Safety Report 11660034 (Version 1)
Quarter: 2015Q4

REPORT INFORMATION
  Report Type: Spontaneous
  Country: US (occurrence: None)
  Receive Date: 20151023
  Receipt Date: 20151023
  Transmission Date: 20160304
  Serious: Yes (Other)
  Sender: FDA-Public Use
  Company Number: None

PATIENT
  Age: 72 Year
  Sex: Female
  Weight: 59.88 kg

DRUGS (1)
  1. SUMATRIPTAN. [Suspect]
     Active Substance: SUMATRIPTAN
     Indication: MIGRAINE
     Route: 058
     Dates: start: 20151012, end: 20151012

REACTIONS (5)
  - Incorrect route of drug administration [None]
  - Hypoaesthesia [None]
  - Injection site pain [None]
  - Injection site nodule [None]
  - Injection site hypoaesthesia [None]

NARRATIVE: CASE EVENT DATE: 20151012
